FAERS Safety Report 7710660-5 (Version None)
Quarter: 2011Q3

REPORT INFORMATION
  Report Type: 
  Country: None (occurrence: None)
  Receive Date: 20110825
  Receipt Date: 20110815
  Transmission Date: 20111222
  Serious: Yes (Other)
  Sender: FDA-Public Use
  Company Number: AU-PFIZER INC-2011187489

PATIENT
  Age: 42 Year
  Sex: Male

DRUGS (1)
  1. PRISTIQ [Suspect]
     Dosage: 50 MG, 1X/DAY
     Dates: start: 20100101, end: 20110802

REACTIONS (5)
  - THINKING ABNORMAL [None]
  - PARANOIA [None]
  - ABNORMAL BEHAVIOUR [None]
  - DELUSION [None]
  - PSYCHOTIC DISORDER [None]
